APPROVED DRUG PRODUCT: IBUPROFEN
Active Ingredient: IBUPROFEN
Strength: 400MG
Dosage Form/Route: TABLET;ORAL
Application: A071029 | Product #001
Applicant: HALSEY DRUG CO INC
Approved: Mar 23, 1987 | RLD: No | RS: No | Type: DISCN